FAERS Safety Report 5731143-8 (Version None)
Quarter: 2008Q2

REPORT INFORMATION
  Report Type: 
  Country: None (occurrence: None)
  Receive Date: 20080505
  Receipt Date: 20080418
  Transmission Date: 20081010
  Serious: Yes (Hospitalization)
  Sender: FDA-Public Use
  Company Number: 8028454

PATIENT
  Age: 3 Year
  Sex: Female

DRUGS (5)
  1. KEPPRA [Suspect]
     Indication: EPILEPSY
     Dosage: 700 MG IV
     Route: 042
     Dates: start: 20071106, end: 20071110
  2. LAMICTAL [Suspect]
     Indication: EPILEPSY
     Dosage: 30 MG /D PO
     Route: 048
     Dates: start: 20070809, end: 20071112
  3. INSOMIN  /00036201/ [Concomitant]
  4. DORMICUM   /00634101/ [Concomitant]
  5. LOSEC MUPS HP [Concomitant]

REACTIONS (3)
  - CONDITION AGGRAVATED [None]
  - CONVULSION [None]
  - STEVENS-JOHNSON SYNDROME [None]
